FAERS Safety Report 21312293 (Version 1)
Quarter: 2022Q3

REPORT INFORMATION
  Report Type: Spontaneous
  Country: US (occurrence: None)
  Receive Date: 20220909
  Receipt Date: 20220909
  Transmission Date: 20221027
  Serious: No
  Sender: FDA-Public Use
  Company Number: US-ARIS GLOBAL-202205-0893

PATIENT
  Age: 75 Year
  Sex: Male

DRUGS (24)
  1. OXERVATE [Suspect]
     Active Substance: CENEGERMIN-BKBJ
     Indication: Neurotrophic keratopathy
     Route: 047
     Dates: start: 20220505
  2. NAPROXEN [Concomitant]
     Active Substance: NAPROXEN
  3. AMLODIPINE AND ATORVASTATIN [Concomitant]
     Active Substance: AMLODIPINE BESYLATE\ATORVASTATIN CALCIUM
  4. TAMSULOSIN HYDROCHLORIDE [Concomitant]
     Active Substance: TAMSULOSIN HYDROCHLORIDE
  5. BUPRENORPHINE\NALOXONE [Concomitant]
     Active Substance: BUPRENORPHINE\NALOXONE
  6. REFRESH CLASSIC [Concomitant]
     Active Substance: POLYVINYL ALCOHOL\POVIDONE
  7. FLUOROMETHOLONE [Concomitant]
     Active Substance: FLUOROMETHOLONE
     Dosage: DROPS SUSPENSION
  8. ERYTHROMYCIN [Concomitant]
     Active Substance: ERYTHROMYCIN
     Dosage: 5MG/GRAM
  9. NITROGLYCERIN [Concomitant]
     Active Substance: NITROGLYCERIN
  10. XIIDRA [Concomitant]
     Active Substance: LIFITEGRAST
  11. METHYL SALICYLATE [Concomitant]
     Active Substance: METHYL SALICYLATE
  12. STOOL SOFTENER (DOCUSATE) [Concomitant]
     Active Substance: DOCUSATE
  13. FERROUS SULFATE [Concomitant]
     Active Substance: FERROUS SULFATE
     Dosage: 325(65) MG
  14. VITAMIN D3 [Concomitant]
     Active Substance: CHOLECALCIFEROL
  15. MULTIVITAMIN 50 PLUS [Concomitant]
  16. CALCIUM\VITAMIN D [Concomitant]
     Active Substance: CALCIUM\VITAMIN D
     Dosage: 500MG-1000
  17. B12 ACTIVE [Concomitant]
  18. VITAMIN E [Concomitant]
     Active Substance: .ALPHA.-TOCOPHEROL
  19. ASPIRIN [Concomitant]
     Active Substance: ASPIRIN
  20. PRIMIDONE [Concomitant]
     Active Substance: PRIMIDONE
  21. TOPIRAMATE [Concomitant]
     Active Substance: TOPIRAMATE
  22. SIMVASTATIN [Concomitant]
     Active Substance: SIMVASTATIN
  23. HYDROCHLOROTHIAZIDE [Concomitant]
     Active Substance: HYDROCHLOROTHIAZIDE
  24. GABAPENTIN [Concomitant]
     Active Substance: GABAPENTIN

REACTIONS (4)
  - Blepharitis [Unknown]
  - Eye pain [Unknown]
  - Lacrimation increased [Unknown]
  - Swelling of eyelid [Unknown]

NARRATIVE: CASE EVENT DATE: 20220511
